FAERS Safety Report 11394833 (Version 1)
Quarter: 2015Q3

REPORT INFORMATION
  Report Type: Spontaneous
  Country: GB (occurrence: GB)
  Receive Date: 20150819
  Receipt Date: 20150819
  Transmission Date: 20151125
  Serious: Yes (Hospitalization)
  Sender: FDA-Public Use
  Company Number: GB-ASTRAZENECA-2015SE78339

PATIENT
  Age: 73 Year
  Sex: Male
  Weight: 88.9 kg

DRUGS (18)
  1. PARACETAMOL [Concomitant]
     Active Substance: ACETAMINOPHEN
  2. QVAR [Concomitant]
     Active Substance: BECLOMETHASONE DIPROPIONATE
  3. FUROSEMIDE. [Concomitant]
     Active Substance: FUROSEMIDE
  4. MORPHINE [Concomitant]
     Active Substance: MORPHINE
  5. ASPIRIN. [Concomitant]
     Active Substance: ASPIRIN
  6. AMITRIPTYLINE [Concomitant]
     Active Substance: AMITRIPTYLINE
  7. ATORVASTATIN [Concomitant]
     Active Substance: ATORVASTATIN
  8. ISOSORBIDE. [Concomitant]
     Active Substance: ISOSORBIDE
  9. NICORANDIL [Concomitant]
     Active Substance: NICORANDIL
  10. PREGABALIN. [Concomitant]
     Active Substance: PREGABALIN
  11. RAMIPRIL. [Concomitant]
     Active Substance: RAMIPRIL
  12. TICAGRELOR [Suspect]
     Active Substance: TICAGRELOR
     Indication: ACUTE CORONARY SYNDROME
     Route: 048
     Dates: start: 20150505, end: 20150804
  13. FLUDROCORTISONE [Concomitant]
     Active Substance: FLUDROCORTISONE
  14. DIGOXIN. [Concomitant]
     Active Substance: DIGOXIN
  15. GTN [Concomitant]
     Active Substance: NITROGLYCERIN
  16. LANSOPRAZOLE. [Concomitant]
     Active Substance: LANSOPRAZOLE
  17. SALBUTAMOL [Concomitant]
     Active Substance: ALBUTEROL
  18. TAMSULOSIN [Concomitant]
     Active Substance: TAMSULOSIN

REACTIONS (2)
  - Dyspnoea [Unknown]
  - Pneumonitis [Unknown]

NARRATIVE: CASE EVENT DATE: 201506
